FAERS Safety Report 5463517-7 (Version None)
Quarter: 2007Q3

REPORT INFORMATION
  Report Type: 
  Country: None (occurrence: None)
  Receive Date: 20070920
  Receipt Date: 20070913
  Transmission Date: 20080115
  Serious: Yes (Other)
  Sender: FDA-Public Use
  Company Number: DE-PFIZER INC-2007076539

PATIENT
  Age: 40 Year
  Sex: Male

DRUGS (1)
  1. REACTINE DUO [Suspect]
     Dosage: TEXT:1TABLET-FREQ:TWICE DAILY
     Route: 048

REACTIONS (4)
  - DYSURIA [None]
  - HYPERTENSION [None]
  - INSOMNIA [None]
  - NERVOUSNESS [None]
